FAERS Safety Report 5235430-1 (Version None)
Quarter: 2007Q1

REPORT INFORMATION
  Report Type: 
  Country: None (occurrence: None)
  Receive Date: 20070212
  Receipt Date: 20070207
  Transmission Date: 20070707
  Serious: Yes (Hospitalization)
  Sender: FDA-Public Use
  Company Number: IT-BRISTOL-MYERS SQUIBB COMPANY-13582176

PATIENT
  Age: 18 Year
  Sex: Male

DRUGS (2)
  1. PROCEF [Suspect]
     Route: 048
     Dates: start: 20061027, end: 20061104
  2. NIFLAM [Concomitant]
     Dates: start: 20061102

REACTIONS (2)
  - INFECTIOUS MONONUCLEOSIS [None]
  - RASH MACULO-PAPULAR [None]
